FAERS Safety Report 9133699 (Version 1)
Quarter: 2013Q1

REPORT INFORMATION
  Report Type: Spontaneous
  Country: IT (occurrence: IT)
  Receive Date: 20130302
  Receipt Date: 20130302
  Transmission Date: 20140127
  Serious: Yes (Hospitalization)
  Sender: FDA-Public Use
  Company Number: IT-TEVA-388736ISR

PATIENT
  Age: 69 Year
  Sex: Female

DRUGS (2)
  1. ALPRAZOLAM [Suspect]
     Dosage: 20 DOSAGE FORMS DAILY;
     Route: 048
     Dates: start: 20120312, end: 20120312
  2. SERETIDE DISKUS [Concomitant]
     Indication: BRONCHITIS
     Dosage: SALMETEROL 50 MCG + FLUTICASONE 100 MCG FOR INHALATION

REACTIONS (3)
  - Respiratory failure [Unknown]
  - Coma [Unknown]
  - Drug abuse [Unknown]
